FAERS Safety Report 11804783 (Version 3)
Quarter: 2015Q4

REPORT INFORMATION
  Report Type: Spontaneous
  Country: SE (occurrence: SE)
  Receive Date: 20151205
  Receipt Date: 20151221
  Transmission Date: 20160305
  Serious: Yes (Other)
  Sender: FDA-Public Use
  Company Number: SE-SUN PHARMACEUTICAL INDUSTRIES LTD-2015R1-107022

PATIENT
  Age: 70 Year
  Sex: Female

DRUGS (2)
  1. PANTOPRAZOL RANBAXY 40MG ENTEROTABLETTER [Suspect]
     Active Substance: PANTOPRAZOLE SODIUM
     Indication: GASTROOESOPHAGEAL SPHINCTER INSUFFICIENCY
     Dosage: UNK
     Route: 048
     Dates: end: 201509
  2. OMEPRAZOL TEVA 20 MG ENTEROCAPSULE, HARD [Suspect]
     Active Substance: OMEPRAZOLE
     Indication: GASTROOESOPHAGEAL SPHINCTER INSUFFICIENCY
     Dosage: UNK
     Route: 048
     Dates: end: 201509

REACTIONS (1)
  - Muscular weakness [Recovered/Resolved]
